FAERS Safety Report 13503990 (Version 2)
Quarter: 2018Q3

REPORT INFORMATION
  Report Type: Spontaneous
  Country: US (occurrence: US)
  Receive Date: 20170502
  Receipt Date: 20180813
  Transmission Date: 20181010
  Serious: No
  Sender: FDA-Public Use
  Company Number: US-CELGENEUS-USA-2017038511

PATIENT
  Age: 61 Year
  Sex: Male

DRUGS (4)
  1. OTEZLA [Suspect]
     Active Substance: APREMILAST
     Indication: OFF LABEL USE
  2. OTEZLA [Suspect]
     Active Substance: APREMILAST
     Indication: ORAL LICHEN PLANUS
     Dosage: 60 MILLIGRAM
     Route: 048
     Dates: start: 20170302, end: 20170331
  3. NORCO [Concomitant]
     Active Substance: ACETAMINOPHEN\HYDROCODONE BITARTRATE
     Indication: PAIN
     Route: 065
  4. OTEZLA [Suspect]
     Active Substance: APREMILAST
     Indication: LICHEN PLANUS
     Dosage: 30 MILLIGRAM
     Route: 048
     Dates: start: 20170406

REACTIONS (1)
  - Headache [Recovered/Resolved]

NARRATIVE: CASE EVENT DATE: 201703
